FAERS Safety Report 9244810 (Version 1)
Quarter: 2013Q2

REPORT INFORMATION
  Report Type: Report from Study
  Country: CA (occurrence: CA)
  Receive Date: 20130422
  Receipt Date: 20130422
  Transmission Date: 20140414
  Serious: Yes (Hospitalization, Other)
  Sender: FDA-Public Use
  Company Number: CA-JNJFOC-20130407506

PATIENT
  Age: 17 Year
  Sex: Female
  Weight: 49 kg

DRUGS (1)
  1. INFLIXIMAB, RECOMBINANT [Suspect]
     Indication: CROHN^S DISEASE
     Dosage: ONCE IN EVERY 2, 4 , 6 AND 8 WEEKS (INDUCTION PHASE)
     Route: 042
     Dates: start: 20130103

REACTIONS (2)
  - Colectomy total [Recovered/Resolved]
  - Thrombosis [Unknown]
